FAERS Safety Report 17488153 (Version 2)
Quarter: 2020Q1

REPORT INFORMATION
  Report Type: Spontaneous
  Country: US (occurrence: US)
  Receive Date: 20200303
  Receipt Date: 20200318
  Transmission Date: 20200409
  Serious: No
  Sender: FDA-Public Use
  Company Number: US-PFIZER INC-2019263843

PATIENT
  Age: 78 Year
  Sex: Female

DRUGS (1)
  1. LYRICA [Suspect]
     Active Substance: PREGABALIN
     Dosage: 50 MG, 1X/DAY (1 PO QHS (EVERY BEDTIME))
     Route: 048

REACTIONS (4)
  - Abdominal discomfort [Unknown]
  - Cough [Unknown]
  - Speech disorder [Unknown]
  - Laryngitis [Unknown]
